FAERS Safety Report 6160328-4 (Version None)
Quarter: 2009Q2

REPORT INFORMATION
  Report Type: 
  Country: None (occurrence: None)
  Receive Date: 20090416
  Receipt Date: 20090401
  Transmission Date: 20091009
  Serious: Yes (Hospitalization)
  Sender: FDA-Public Use
  Company Number: 2008002187

PATIENT
  Age: 79 Year
  Sex: Female
  Weight: 43.9 kg

DRUGS (11)
  1. ERLOTINIB (TABLET) [Suspect]
     Indication: LUNG ADENOCARCINOMA
     Dosage: (150 MG, QD), ORAL
     Route: 048
     Dates: start: 20080723
  2. ALFAROL (ALFACALCIDOL) [Concomitant]
  3. MAGNESIUM OXIDE (MAGNESIUM OXIDE) [Concomitant]
  4. GLUTAMINE [Concomitant]
  5. ETIZOLAM (ETIZOLAM) [Concomitant]
  6. ZOLPIDEM TARTRATE [Concomitant]
  7. DEXTROMETHORPHAN (DEXTROMETHORPHAN) [Concomitant]
  8. GASMOTIN (MOSAPRIDE CITRATE) [Concomitant]
  9. MUCODYNE (CARBOCISTEINE) [Concomitant]
  10. MUCOSOLVAN (AMBROXOL HYDROCHLORIDE) [Concomitant]
  11. PROCATEROL HCL [Concomitant]

REACTIONS (4)
  - DIARRHOEA [None]
  - PARONYCHIA [None]
  - WHITE BLOOD CELL COUNT DECREASED [None]
  - XEROSIS [None]
